FAERS Safety Report 14063454 (Version 1)
Quarter: 2017Q4

REPORT INFORMATION
  Report Type: Spontaneous
  Country: US (occurrence: US)
  Receive Date: 20171009
  Receipt Date: 20171009
  Transmission Date: 20180321
  Serious: Yes (Other)
  Sender: FDA-Public Use
  Company Number: US-PFIZER INC-2017428897

PATIENT
  Age: 44 Year
  Sex: Female

DRUGS (6)
  1. CIMETIDINE [Concomitant]
     Active Substance: CIMETIDINE
     Indication: PREMEDICATION
     Dosage: 300 MG, UNK (INTRAVENOUSLY 30 MINUTES BEFORE PACLITAXEL ADMINISTRATION)
     Route: 042
  2. DEXAMETHASONE. [Interacting]
     Active Substance: DEXAMETHASONE
     Indication: PREMEDICATION
     Dosage: 20 MG, UNK  (INTRAVENOUSLY 30 MINUTES BEFORE PACLITAXEL ADMINISTRATION)
     Route: 042
  3. ONDANSETRON [Concomitant]
     Active Substance: ONDANSETRON
     Indication: PREMEDICATION
     Dosage: 20 MG, UNK (INTRAVENOUSLY 30 MINUTES BEFORE PACLITAXEL ADMINISTRATION)
     Route: 042
  4. DIPHENHYDRAMINE. [Concomitant]
     Active Substance: DIPHENHYDRAMINE
     Indication: PREMEDICATION
     Dosage: 50 MG, UNK  (INTRAVENOUSLY 30 MINUTES BEFORE PACLITAXEL ADMINISTRATION)
     Route: 042
  5. PACLITAXEL. [Suspect]
     Active Substance: PACLITAXEL
     Indication: INVASIVE DUCTAL BREAST CARCINOMA
     Dosage: 175 MG/M2, UNK (3-HOUR INTRAVENOUS INFUSION)
     Route: 042
  6. CREMOPHOR EL [Suspect]
     Active Substance: POLYOXYL 35 CASTOR OIL
     Dosage: UNK

REACTIONS (2)
  - Drug interaction [Unknown]
  - Pancreatitis acute [Recovering/Resolving]
